FAERS Safety Report 22624600 (Version 1)
Quarter: 2023Q2

REPORT INFORMATION
  Report Type: Report from Study
  Country: FR (occurrence: FR)
  Receive Date: 20230621
  Receipt Date: 20230621
  Transmission Date: 20230722
  Serious: Yes (Other)
  Sender: FDA-Public Use
  Company Number: None

PATIENT

DRUGS (7)
  1. PEGASPARGASE [Suspect]
     Active Substance: PEGASPARGASE
     Indication: Acute lymphocytic leukaemia
     Dosage: 1800 IU, ON D12
     Route: 042
     Dates: start: 20200608, end: 20200608
  2. CYCLOPHOSPHAMIDE [Suspect]
     Active Substance: CYCLOPHOSPHAMIDE
     Indication: Acute lymphocytic leukaemia
     Dosage: 700 MG, D1, D29
     Route: 042
     Dates: start: 20200708, end: 20200805
  3. MERCAPTOPURINE [Suspect]
     Active Substance: MERCAPTOPURINE
     Indication: Acute lymphocytic leukaemia
     Dosage: 40 MG, D1 TO D4, D29 TO D41
     Route: 048
     Dates: start: 20200708, end: 20200817
  4. CYTARABINE [Suspect]
     Active Substance: CYTARABINE
     Indication: Acute lymphocytic leukaemia
     Dosage: 55 MG, D3 TO D7, D10 TO D13, D31 TO D34, D38 TO UNSPECIFIED
     Route: 042
     Dates: start: 20200711, end: 20200816
  5. VINCRISTINE [Suspect]
     Active Substance: VINCRISTINE
     Indication: Acute lymphocytic leukaemia
     Dosage: 1.2 MG, D15, D22, D43, D50
     Route: 042
     Dates: start: 20200722, end: 20200826
  6. DEXAMETHASONE [Suspect]
     Active Substance: DEXAMETHASONE
     Indication: Acute lymphocytic leukaemia
     Dosage: 4.0 MG FROM D8 TO D28
     Route: 042
     Dates: start: 20200604, end: 20200625
  7. METHOTREXATE [Suspect]
     Active Substance: METHOTREXATE
     Indication: Acute lymphocytic leukaemia
     Dosage: 12 MG, FROM D13 TO D24
     Route: 037
     Dates: start: 20200609, end: 20200620

REACTIONS (3)
  - Cerebral venous thrombosis [Recovered/Resolved]
  - Papilloedema [Recovered/Resolved]
  - Optic disc haemorrhage [Recovered/Resolved]

NARRATIVE: CASE EVENT DATE: 20200622
